FAERS Safety Report 6779924-6 (Version None)
Quarter: 2010Q2

REPORT INFORMATION
  Report Type: 
  Country: None (occurrence: None)
  Receive Date: 20100618
  Receipt Date: 20100615
  Transmission Date: 20101027
  Serious: Yes (Other)
  Sender: FDA-Public Use
  Company Number: CA-MERCK-1006USA02342

PATIENT
  Age: 56 Year
  Sex: Female
  Weight: 99 kg

DRUGS (5)
  1. JANUVIA [Suspect]
     Route: 048
  2. AVAPRO [Concomitant]
     Route: 065
  3. CYTOMEL [Concomitant]
     Route: 065
  4. INDERAL LA [Concomitant]
     Route: 065
  5. XENICAL [Concomitant]
     Route: 065

REACTIONS (3)
  - LIP BLISTER [None]
  - LIP SWELLING [None]
  - SWELLING FACE [None]
